FAERS Safety Report 13192681 (Version 1)
Quarter: 2017Q1

REPORT INFORMATION
  Report Type: Spontaneous
  Country: US (occurrence: US)
  Receive Date: 20170207
  Receipt Date: 20170207
  Transmission Date: 20170428
  Serious: Yes (Disabling)
  Sender: FDA-Public Use
  Company Number: None

PATIENT
  Age: 49 Year
  Sex: Male
  Weight: 92.53 kg

DRUGS (6)
  1. SEROQUEL [Suspect]
     Active Substance: QUETIAPINE FUMARATE
     Indication: NIGHTMARE
     Dosage: ONE PILL 2 PILLS BEDTIME BY MOUTH
     Route: 048
     Dates: start: 20161221, end: 20170103
  2. SEROQUEL [Suspect]
     Active Substance: QUETIAPINE FUMARATE
     Indication: ANXIETY
     Dosage: ONE PILL 2 PILLS BEDTIME BY MOUTH
     Route: 048
     Dates: start: 20161221, end: 20170103
  3. HYDOXYZINE [Concomitant]
  4. SEROQUEL [Suspect]
     Active Substance: QUETIAPINE FUMARATE
     Indication: HALLUCINATION, AUDITORY
     Dosage: ONE PILL 2 PILLS BEDTIME BY MOUTH
     Route: 048
     Dates: start: 20161221, end: 20170103
  5. SEROQUEL [Suspect]
     Active Substance: QUETIAPINE FUMARATE
     Indication: PRODUCT USED FOR UNKNOWN INDICATION
     Dosage: ONE PILL 2 PILLS BEDTIME BY MOUTH
     Route: 048
     Dates: start: 20161221, end: 20170103
  6. TRAZODONE [Concomitant]
     Active Substance: TRAZODONE HYDROCHLORIDE

REACTIONS (1)
  - Visual acuity reduced [None]

NARRATIVE: CASE EVENT DATE: 20161221
